FAERS Safety Report 14265464 (Version 1)
Quarter: 2017Q4

REPORT INFORMATION
  Report Type: Spontaneous
  Country: US (occurrence: US)
  Receive Date: 20171208
  Receipt Date: 20171208
  Transmission Date: 20180321
  Serious: Yes (Other)
  Sender: FDA-Public Use
  Company Number: PHHY2017US179366

PATIENT
  Age: 56 Year
  Sex: Male

DRUGS (2)
  1. DOCETAXEL. [Suspect]
     Active Substance: DOCETAXEL
     Indication: ANAPLASTIC THYROID CANCER
     Dosage: QW
     Route: 065
  2. DOXORUBICIN [Suspect]
     Active Substance: DOXORUBICIN
     Indication: ANAPLASTIC THYROID CANCER
     Dosage: QW
     Route: 065

REACTIONS (7)
  - Toxicity to various agents [Unknown]
  - Chest discomfort [Unknown]
  - Muscle tightness [Unknown]
  - Dysphagia [Unknown]
  - Anaemia [Unknown]
  - Leukopenia [Unknown]
  - Product use in unapproved indication [Unknown]
